FAERS Safety Report 18984817 (Version 1)
Quarter: 2021Q1

REPORT INFORMATION
  Report Type: Other
  Country: US (occurrence: US)
  Receive Date: 20210308
  Receipt Date: 20210308
  Transmission Date: 20210420
  Serious: No
  Sender: FDA-Public Use
  Company Number: US-AMAG PHARMACEUTICALS, INC.-AMAG202100538

PATIENT
  Age: 32 Year
  Sex: Female

DRUGS (1)
  1. MAKENA [Suspect]
     Active Substance: HYDROXYPROGESTERONE CAPROATE
     Indication: PREMATURE DELIVERY
     Dosage: 275MG/1.1ML
     Route: 058
     Dates: end: 20210208

REACTIONS (5)
  - Injection site bruising [Unknown]
  - Product administered at inappropriate site [Unknown]
  - Injection site nodule [Unknown]
  - Pruritus [Unknown]
  - Injection site swelling [Unknown]
